FAERS Safety Report 24729133 (Version 1)
Quarter: 2024Q4

REPORT INFORMATION
  Report Type: Spontaneous
  Country: KR (occurrence: KR)
  Receive Date: 20241213
  Receipt Date: 20241213
  Transmission Date: 20250115
  Serious: Yes (Other)
  Sender: ASTELLAS
  Company Number: KR-ASTELLAS-2024-AER-023828

PATIENT
  Age: 55 Year
  Sex: Female

DRUGS (1)
  1. XOSPATA [Suspect]
     Active Substance: GILTERITINIB
     Indication: Acute myeloid leukaemia
     Dosage: AROUND NOON
     Route: 065
     Dates: start: 2024

REACTIONS (4)
  - Acute myeloid leukaemia recurrent [Unknown]
  - Rash [Unknown]
  - Drug resistance [Unknown]
  - Underdose [Unknown]

NARRATIVE: CASE EVENT DATE: 20240101
